FAERS Safety Report 7653852-6 (Version None)
Quarter: 2011Q3

REPORT INFORMATION
  Report Type: 
  Country: None (occurrence: None)
  Receive Date: 20110801
  Receipt Date: 20110801
  Transmission Date: 20111222
  Serious: Yes (Hospitalization)
  Sender: FDA-Public Use
  Company Number: None

PATIENT
  Age: 72 Year
  Sex: Male
  Weight: 58.7 kg

DRUGS (2)
  1. PIPERACILLIN AND TAZOBACTAM [Suspect]
     Indication: ABSCESS
     Dosage: 3.375 GM QID IV
     Route: 042
     Dates: start: 20110524, end: 20110527
  2. AMOXICILLIN AND CLAVULANATE POTASSIUM [Suspect]
     Indication: ABSCESS
     Dosage: 1 TAB BID PO
     Route: 048
     Dates: start: 20110526, end: 20110602

REACTIONS (2)
  - CLOSTRIDIAL INFECTION [None]
  - DIARRHOEA [None]
